FAERS Safety Report 7353467-3 (Version None)
Quarter: 2011Q1

REPORT INFORMATION
  Report Type: 
  Country: None (occurrence: None)
  Receive Date: 20110315
  Receipt Date: 20110310
  Transmission Date: 20110831
  Serious: Yes (Hospitalization)
  Sender: FDA-Public Use
  Company Number: US-CEPHALON-2010003906

PATIENT
  Sex: Female
  Weight: 76 kg

DRUGS (2)
  1. TREANDA [Suspect]
     Indication: MANTLE CELL LYMPHOMA
     Route: 042
     Dates: start: 20090928, end: 20100504
  2. RITUXAN [Concomitant]
     Indication: MANTLE CELL LYMPHOMA
     Route: 042
     Dates: end: 20100503

REACTIONS (9)
  - OPPORTUNISTIC INFECTION [None]
  - CYSTITIS [None]
  - TOXOPLASMOSIS [None]
  - CEREBRAL TOXOPLASMOSIS [None]
  - BRAIN NATRIURETIC PEPTIDE ABNORMAL [None]
  - FULL BLOOD COUNT ABNORMAL [None]
  - BLOOD IMMUNOGLOBULIN G ABNORMAL [None]
  - LYMPHOPENIA [None]
  - LABORATORY TEST ABNORMAL [None]
